FAERS Safety Report 18732406 (Version 2)
Quarter: 2021Q1

REPORT INFORMATION
  Report Type: Spontaneous
  Country: US (occurrence: US)
  Receive Date: 20210112
  Receipt Date: 20210215
  Transmission Date: 20210419
  Serious: No
  Sender: FDA-Public Use
  Company Number: US-ASTRAZENECA-2020SF70863

PATIENT
  Sex: Female
  Weight: 108.9 kg

DRUGS (7)
  1. FASENRA [Suspect]
     Active Substance: BENRALIZUMAB
     Indication: PNEUMONIA
     Dosage: EVERY EIGHT WEEKS
     Route: 058
     Dates: start: 202009
  2. OMEPRAZOLE. [Suspect]
     Active Substance: OMEPRAZOLE
     Indication: GASTROOESOPHAGEAL REFLUX DISEASE
     Dosage: 20.0MG UNKNOWN
     Route: 048
  3. DUONEB [Concomitant]
     Active Substance: ALBUTEROL SULFATE\IPRATROPIUM BROMIDE
     Route: 065
  4. FASENRA [Suspect]
     Active Substance: BENRALIZUMAB
     Indication: WHEEZING
     Dosage: EVERY EIGHT WEEKS
     Route: 058
     Dates: start: 202009
  5. PREDNISONE. [Concomitant]
     Active Substance: PREDNISONE
     Route: 065
  6. FASENRA [Suspect]
     Active Substance: BENRALIZUMAB
     Indication: COUGH
     Dosage: EVERY EIGHT WEEKS
     Route: 058
     Dates: start: 202009
  7. SINGULAIR [Concomitant]
     Active Substance: MONTELUKAST SODIUM
     Route: 065

REACTIONS (7)
  - Loss of consciousness [Recovered/Resolved]
  - Feeling abnormal [Recovered/Resolved]
  - Laryngitis [Not Recovered/Not Resolved]
  - Adverse drug reaction [Recovered/Resolved]
  - Hypotension [Recovered/Resolved]
  - Tenderness [Not Recovered/Not Resolved]
  - Dizziness [Recovered/Resolved]
